FAERS Safety Report 15924791 (Version 3)
Quarter: 2019Q2

REPORT INFORMATION
  Report Type: Spontaneous
  Country: US (occurrence: US)
  Receive Date: 20190206
  Receipt Date: 20190619
  Transmission Date: 20190711
  Serious: No
  Sender: FDA-Public Use
  Company Number: US-ASTRAZENECA-2019SE05229

PATIENT
  Sex: Female
  Weight: 63.5 kg

DRUGS (12)
  1. ZESTRIL [Suspect]
     Active Substance: LISINOPRIL
     Indication: HYPERTENSION
     Route: 048
  2. NEURONTIN [Concomitant]
     Active Substance: GABAPENTIN
     Indication: NERVE INJURY
  3. CLORAVASC VIT C WITH IRON [Concomitant]
     Dosage: 65MG-32.5M
     Route: 048
     Dates: start: 201811
  4. CRESTOR [Suspect]
     Active Substance: ROSUVASTATIN CALCIUM
     Indication: BLOOD CHOLESTEROL ABNORMAL
     Route: 048
  5. BYDUREON BCISE [Suspect]
     Active Substance: EXENATIDE
     Indication: TYPE 2 DIABETES MELLITUS
     Route: 058
     Dates: start: 20181231
  6. FISH OIL [Concomitant]
     Active Substance: FISH OIL
  7. FOLIC ACID. [Concomitant]
     Active Substance: FOLIC ACID
     Route: 048
  8. ASPIRIN LOW GRADE [Concomitant]
     Route: 048
     Dates: end: 201811
  9. HYDRALAZINE [Concomitant]
     Active Substance: HYDRALAZINE HYDROCHLORIDE
     Indication: BLOOD PRESSURE ABNORMAL
     Route: 048
  10. METFORMIN XR GLUCOPHAGE [Concomitant]
     Route: 048
     Dates: end: 20181213
  11. ERGOCALCIFEROL. [Concomitant]
     Active Substance: ERGOCALCIFEROL
  12. ADALAT BC [Concomitant]
     Indication: BLOOD PRESSURE ABNORMAL
     Route: 048

REACTIONS (8)
  - Weight decreased [Unknown]
  - Device issue [Unknown]
  - Blood cholesterol increased [Unknown]
  - Injection site haemorrhage [Unknown]
  - Device leakage [Unknown]
  - Incorrect dose administered by device [Unknown]
  - Anaemia [Unknown]
  - Hypertension [Unknown]
